FAERS Safety Report 22161674 (Version 1)
Quarter: 2023Q1

REPORT INFORMATION
  Report Type: Spontaneous
  Country: US (occurrence: US)
  Receive Date: 20230331
  Receipt Date: 20230331
  Transmission Date: 20230418
  Serious: No
  Sender: FDA-Public Use
  Company Number: US-IBSA PHARMA INC.-2022-IBS-01835

PATIENT
  Age: 80 Year
  Sex: Female
  Weight: 81.65 kg

DRUGS (2)
  1. FLECTOR [Suspect]
     Active Substance: DICLOFENAC EPOLAMINE
     Indication: Arthralgia
     Dosage: 1 POUCH EVERY 12 HOURS,DAILY
     Route: 061
  2. DICLOFENAC SODIUM [Concomitant]
     Active Substance: DICLOFENAC SODIUM
     Indication: Product used for unknown indication
     Route: 061

REACTIONS (2)
  - Drug ineffective [Unknown]
  - Intentional product use issue [Unknown]
